FAERS Safety Report 15048966 (Version 1)
Quarter: 2018Q3

REPORT INFORMATION
  Report Type: Spontaneous
  Country: FR (occurrence: FR)
  Receive Date: 20180622
  Receipt Date: 20180622
  Transmission Date: 20181010
  Serious: Yes (Other)
  Sender: FDA-Public Use
  Company Number: FR-MERCK KGAA-2049833

PATIENT
  Sex: Female

DRUGS (1)
  1. NOVOTHYROX [Suspect]
     Active Substance: LEVOTHYROXINE SODIUM
     Indication: HYPOTHYROIDISM
     Dates: start: 2017

REACTIONS (9)
  - Headache [None]
  - Haemorrhage [None]
  - Depression [None]
  - Weight increased [None]
  - Myalgia [None]
  - Amenorrhoea [None]
  - Hyperthyroidism [None]
  - Irritability [None]
  - Menstrual disorder [None]

NARRATIVE: CASE EVENT DATE: 2017
